FAERS Safety Report 8385717-9 (Version None)
Quarter: 2012Q2

REPORT INFORMATION
  Report Type: 
  Country: None (occurrence: None)
  Receive Date: 20120523
  Receipt Date: 20120523
  Transmission Date: 20120825
  Serious: No
  Sender: FDA-Public Use
  Company Number: None

PATIENT
  Sex: Male
  Weight: 74.8435 kg

DRUGS (1)
  1. IRBESARTAN [Suspect]
     Indication: HYPERTENSION
     Dosage: 150 MG 1/2 TAB QD P.O.
     Route: 048
     Dates: start: 20120417

REACTIONS (4)
  - PALPITATIONS [None]
  - ABDOMINAL DISCOMFORT [None]
  - HEADACHE [None]
  - CHEST PAIN [None]
